FAERS Safety Report 22765313 (Version 2)
Quarter: 2024Q1

REPORT INFORMATION
  Report Type: Spontaneous
  Country: US (occurrence: US)
  Receive Date: 20230731
  Receipt Date: 20240201
  Transmission Date: 20240409
  Serious: Yes (Other)
  Sender: FDA-Public Use
  Company Number: US-CIPLA LTD.-2023US03933

PATIENT

DRUGS (3)
  1. SAJAZIR [Suspect]
     Active Substance: ICATIBANT ACETATE
     Indication: Complement factor abnormal
     Dosage: 30 MILLIGRAM, PRN
     Route: 058
     Dates: start: 20230707
  2. SAJAZIR [Suspect]
     Active Substance: ICATIBANT ACETATE
     Indication: Angioedema
     Dosage: 30 MILLIGRAM, PRN
     Route: 058
     Dates: start: 20230707
  3. BENADRYL [Concomitant]
     Active Substance: DIPHENHYDRAMINE HYDROCHLORIDE
     Indication: Product used for unknown indication
     Dosage: UNK
     Route: 065

REACTIONS (8)
  - Angina pectoris [Unknown]
  - Hypertension [Unknown]
  - Blood glucose increased [Unknown]
  - Hereditary angioedema [Unknown]
  - Blood sodium increased [Unknown]
  - Fatigue [Unknown]
  - Somnolence [Unknown]
  - Pyrexia [Unknown]
